FAERS Safety Report 9711949 (Version 1)
Quarter: 2013Q4

REPORT INFORMATION
  Report Type: Spontaneous
  Country: US (occurrence: None)
  Receive Date: 20131125
  Receipt Date: 20131125
  Transmission Date: 20140711
  Serious: Yes (Other)
  Sender: FDA-Public Use
  Company Number: None

PATIENT
  Sex: Female

DRUGS (2)
  1. EQUATE EYE ITCH RELIEF [Suspect]
     Indication: EYE SWELLING
     Dosage: 1 DROP TWICE DAILY INTO THE EYE
     Dates: start: 20130705, end: 20130710
  2. EQUATE EYE ITCH RELIEF [Suspect]
     Indication: FOREIGN BODY SENSATION IN EYES
     Dosage: 1 DROP TWICE DAILY INTO THE EYE
     Dates: start: 20130705, end: 20130710

REACTIONS (3)
  - Visual impairment [None]
  - Eye pain [None]
  - Vision blurred [None]
